FAERS Safety Report 6502418-X (Version None)
Quarter: 2009Q4

REPORT INFORMATION
  Report Type: 
  Country: None (occurrence: None)
  Receive Date: 20091216
  Receipt Date: 20091117
  Transmission Date: 20100525
  Serious: No
  Sender: FDA-Public Use
  Company Number: US-ABBOTT-09P-163-0609985-00

PATIENT
  Sex: Female
  Weight: 68.1 kg

DRUGS (2)
  1. TRILIPIX [Suspect]
     Indication: BLOOD CHOLESTEROL INCREASED
     Dates: start: 20091001
  2. PROPRANOLOL [Concomitant]
     Indication: HEART RATE INCREASED

REACTIONS (4)
  - ABNORMAL SENSATION IN EYE [None]
  - COUGH [None]
  - EYE IRRITATION [None]
  - OCULAR HYPERAEMIA [None]
